FAERS Safety Report 7679735-3 (Version None)
Quarter: 2011Q3

REPORT INFORMATION
  Report Type: 
  Country: None (occurrence: None)
  Receive Date: 20110812
  Receipt Date: 20110805
  Transmission Date: 20111222
  Serious: Yes (Hospitalization)
  Sender: FDA-Public Use
  Company Number: JP-CEPHALON-2011000990

PATIENT
  Sex: Male
  Weight: 62 kg

DRUGS (11)
  1. SULFAMETHOXAZOLE AND TRIMETHOPRIM [Concomitant]
     Dates: start: 20110129
  2. SODIUM PICOSULFATE [Concomitant]
     Dates: start: 20101227
  3. VALACYCLOVIR HYDROCHLORIDE [Concomitant]
  4. INSULIN HUMAN [Concomitant]
     Dates: start: 20110120, end: 20110224
  5. TULOBUTEROL [Concomitant]
     Dates: start: 20101227
  6. GRANISETRON HYDROCHLORIDE [Concomitant]
     Dates: start: 20110120, end: 20110211
  7. ALLOPURINOL [Concomitant]
     Dates: start: 20101227
  8. MITIGLINIDE CALCIUM [Concomitant]
     Dates: start: 20110105
  9. BENDAMUSTINE HCL [Suspect]
     Indication: B-CELL LYMPHOMA
     Route: 041
     Dates: start: 20110120, end: 20110121
  10. EPINASTINE HYDROCHLORIDE [Concomitant]
     Dates: start: 20101227
  11. BENDAMUSTINE HCL [Suspect]
     Route: 042
     Dates: start: 20110210, end: 20110211

REACTIONS (1)
  - GASTROINTESTINAL PERFORATION [None]
